FAERS Safety Report 4903454-7 (Version None)
Quarter: 2006Q1

REPORT INFORMATION
  Report Type: 
  Country: None (occurrence: None)
  Receive Date: 20060203
  Receipt Date: 20060126
  Transmission Date: 20060701
  Serious: Yes (Other)
  Sender: FDA-Public Use
  Company Number: DE-2005-023060

PATIENT
  Sex: Female

DRUGS (1)
  1. MIRENA [Suspect]
     Dosage: 20 UG/DAY, CONT, INTRA-UTERINE
     Route: 015
     Dates: start: 19990101, end: 20050101

REACTIONS (3)
  - BREAST CANCER FEMALE [None]
  - METASTASES TO CENTRAL NERVOUS SYSTEM [None]
  - PROGESTERONE RECEPTOR ASSAY POSITIVE [None]
